FAERS Safety Report 6317248-1 (Version None)
Quarter: 2009Q3

REPORT INFORMATION
  Report Type: 
  Country: None (occurrence: None)
  Receive Date: 20090819
  Receipt Date: 20090803
  Transmission Date: 20100115
  Serious: Yes (Hospitalization)
  Sender: FDA-Public Use
  Company Number: 2008AL008823

PATIENT
  Age: 78 Year
  Sex: Male

DRUGS (11)
  1. DIGOXIN [Suspect]
     Indication: CARDIAC FAILURE
     Dosage: 0.125MG, DAILY, PO
     Route: 048
  2. PROPRANOLOL [Concomitant]
  3. IMDUR [Concomitant]
  4. ASPIRIN [Concomitant]
  5. GLUCOTROL [Concomitant]
  6. SYNTHROID [Concomitant]
  7. LASIX [Concomitant]
  8. ADVAIR HFA [Concomitant]
  9. POTASSIUM CHLORIDE [Concomitant]
  10. DULCOLAX [Concomitant]
  11. COZAAR [Concomitant]

REACTIONS (26)
  - ABNORMAL BEHAVIOUR [None]
  - ANHEDONIA [None]
  - ANXIETY [None]
  - ASTHENIA [None]
  - BALANCE DISORDER [None]
  - BLOOD PRESSURE INCREASED [None]
  - CHEST DISCOMFORT [None]
  - CONFUSIONAL STATE [None]
  - COUGH [None]
  - DEHYDRATION [None]
  - DIARRHOEA [None]
  - DIZZINESS [None]
  - DYSPNOEA [None]
  - FEELING OF BODY TEMPERATURE CHANGE [None]
  - GASTROENTERITIS [None]
  - HYPOTENSION [None]
  - MENTAL STATUS CHANGES [None]
  - MULTIPLE INJURIES [None]
  - NAUSEA [None]
  - ORTHOSTATIC HYPERTENSION [None]
  - PAIN [None]
  - PALPITATIONS [None]
  - PLEURITIC PAIN [None]
  - PULMONARY CONGESTION [None]
  - PYREXIA [None]
  - VOMITING [None]
